FAERS Safety Report 25374541 (Version 1)
Quarter: 2025Q2

REPORT INFORMATION
  Report Type: Spontaneous
  Country: US (occurrence: None)
  Receive Date: 20250528
  Receipt Date: 20250528
  Transmission Date: 20250717
  Serious: Yes (Disabling)
  Sender: FDA-CTU
  Company Number: None

PATIENT
  Age: 55 Year
  Sex: Female
  Weight: 67.5 kg

DRUGS (1)
  1. LUVOX [Suspect]
     Active Substance: FLUVOXAMINE MALEATE
     Indication: Obsessive-compulsive disorder
     Dates: start: 20190203, end: 20220315

REACTIONS (2)
  - Akathisia [None]
  - Withdrawal syndrome [None]

NARRATIVE: CASE EVENT DATE: 20220301
